FAERS Safety Report 9635935 (Version 1)
Quarter: 2013Q4

REPORT INFORMATION
  Report Type: Spontaneous
  Country: US (occurrence: US)
  Receive Date: 20131021
  Receipt Date: 20131021
  Transmission Date: 20140711
  Serious: No
  Sender: FDA-Public Use
  Company Number: US-PURDUE-USA-2013-0104142

PATIENT
  Sex: Female

DRUGS (1)
  1. BUTRANS [Suspect]
     Indication: ARTHRALGIA
     Dosage: 20 MCG/HR, UNK
     Route: 062
     Dates: start: 20130627, end: 20130628

REACTIONS (5)
  - Intentional drug misuse [Recovered/Resolved]
  - Drug administered at inappropriate site [Recovered/Resolved]
  - Dizziness postural [Recovering/Resolving]
  - Vomiting [Recovering/Resolving]
  - Somnolence [Not Recovered/Not Resolved]
